FAERS Safety Report 17539309 (Version 1)
Quarter: 2020Q1

REPORT INFORMATION
  Report Type: Spontaneous
  Country: US (occurrence: US)
  Receive Date: 20200313
  Receipt Date: 20200313
  Transmission Date: 20200409
  Serious: Yes (Other)
  Sender: FDA-Public Use
  Company Number: US-ELI_LILLY_AND_COMPANY-US202003001713

PATIENT
  Sex: Female

DRUGS (3)
  1. CISPLATINE [Concomitant]
     Active Substance: CISPLATIN
     Indication: CHOLANGIOCARCINOMA
  2. PACLITAXEL ALBUMIN [Concomitant]
     Active Substance: PACLITAXEL
     Indication: CHOLANGIOCARCINOMA
  3. GEMCITABINE HYDROCHLORIDE. [Suspect]
     Active Substance: GEMCITABINE HYDROCHLORIDE
     Indication: CHOLANGIOCARCINOMA
     Dosage: UNK, UNKNOWN
     Route: 065

REACTIONS (3)
  - Gastroenteritis radiation [Recovered/Resolved]
  - Off label use [Unknown]
  - Malignant neoplasm progression [Unknown]
